FAERS Safety Report 7791655-2 (Version None)
Quarter: 2011Q4

REPORT INFORMATION
  Report Type: 
  Country: None (occurrence: None)
  Receive Date: 20111003
  Receipt Date: 20110922
  Transmission Date: 20120403
  Serious: Yes (Hospitalization, Other)
  Sender: FDA-Public Use
  Company Number: US-JNJFOC-20110910792

PATIENT
  Sex: Female
  Weight: 88.91 kg

DRUGS (5)
  1. DURAGESIC-100 [Suspect]
     Indication: BACK PAIN
     Route: 062
     Dates: end: 20101001
  2. DURAGESIC-100 [Suspect]
     Route: 062
     Dates: start: 20110901
  3. PERCOCET [Suspect]
     Indication: PRODUCT USED FOR UNKNOWN INDICATION
     Route: 065
  4. DURAGESIC-100 [Suspect]
     Route: 062
     Dates: start: 20110906, end: 20110901
  5. DURAGESIC-100 [Suspect]
     Route: 062
     Dates: start: 20110801, end: 20110906

REACTIONS (8)
  - BACK PAIN [None]
  - DERMATITIS [None]
  - SPINAL DISORDER [None]
  - PRODUCT QUALITY ISSUE [None]
  - NERVOUS SYSTEM DISORDER [None]
  - GAIT DISTURBANCE [None]
  - DRUG INEFFECTIVE [None]
  - DRUG DOSE OMISSION [None]
